FAERS Safety Report 7547801-9 (Version None)
Quarter: 2011Q2

REPORT INFORMATION
  Report Type: 
  Country: None (occurrence: None)
  Receive Date: 20110615
  Receipt Date: 20110607
  Transmission Date: 20111010
  Serious: Yes (Hospitalization)
  Sender: FDA-Public Use
  Company Number: AR-BIOGENIDEC-2010BI033833

PATIENT
  Age: 66 Year
  Sex: Female

DRUGS (6)
  1. TYSABRI [Suspect]
     Indication: OPTIC NEURITIS
     Route: 042
     Dates: start: 20091201, end: 20100101
  2. PAROXETINA [Concomitant]
     Indication: DEPRESSION
     Route: 048
  3. LEVOTHYROXINE SODIUM [Concomitant]
     Indication: HYPOTHYROIDISM
     Route: 048
  4. LEVOTHYROXINE SODIUM [Concomitant]
  5. ATORVASTATIN [Concomitant]
  6. TYSABRI [Suspect]
     Route: 042
     Dates: start: 20100701, end: 20100801

REACTIONS (5)
  - INFECTION [None]
  - CONFUSIONAL STATE [None]
  - VASCULITIS [None]
  - HYPOTHYROIDISM [None]
  - MULTIPLE SCLEROSIS [None]
